FAERS Safety Report 5817866-0 (Version None)
Quarter: 2008Q3

REPORT INFORMATION
  Report Type: 
  Country: None (occurrence: None)
  Receive Date: 20080722
  Receipt Date: 20070625
  Transmission Date: 20090109
  Serious: Yes (Hospitalization, Other)
  Sender: FDA-Public Use
  Company Number: US-BAYER-US-2007-020657

PATIENT
  Age: 42 Year
  Sex: Female

DRUGS (1)
  1. MAGNEVIST [Suspect]
     Indication: NUCLEAR MAGNETIC RESONANCE IMAGING BRAIN
     Dosage: UNIT DOSE: 19 ML
     Route: 042
     Dates: start: 20070327, end: 20070327

REACTIONS (4)
  - ANAPHYLACTIC SHOCK [None]
  - DYSPHAGIA [None]
  - ERYTHEMA [None]
  - OBSTRUCTIVE AIRWAYS DISORDER [None]
